FAERS Safety Report 9456294 (Version 1)
Quarter: 2013Q3

REPORT INFORMATION
  Report Type: Spontaneous
  Country: GB (occurrence: GB)
  Receive Date: 20130813
  Receipt Date: 20130813
  Transmission Date: 20140515
  Serious: Yes (Other)
  Sender: FDA-Public Use
  Company Number: GB-WATSON-2013-14223

PATIENT
  Age: 54 Year
  Sex: Female

DRUGS (1)
  1. METRONIDAZOLE (UNKNOWN) [Suspect]
     Indication: ANTIBIOTIC PROPHYLAXIS
     Dosage: 400 MG, TID FOR 1 DAY
     Route: 048
     Dates: start: 20130630, end: 20130702

REACTIONS (5)
  - Pruritus [Unknown]
  - Local swelling [Unknown]
  - Chromaturia [Unknown]
  - Rash macular [Unknown]
  - Paraesthesia [Unknown]
